FAERS Safety Report 5834455-2 (Version None)
Quarter: 2008Q3

REPORT INFORMATION
  Report Type: 
  Country: None (occurrence: None)
  Receive Date: 20080805
  Receipt Date: 20080731
  Transmission Date: 20090109
  Serious: Yes (Death)
  Sender: FDA-Public Use
  Company Number: NL-BOEHRINGER INGELHEIM GMBH, GERMANY-2008-DE-04542GD

PATIENT

DRUGS (4)
  1. PERSANTINE [Suspect]
     Indication: ANTIPLATELET THERAPY
  2. ASCAL [Suspect]
     Indication: ANTIPLATELET THERAPY
  3. HEPARIN [Suspect]
     Dosage: DEPENDING ON WEIGHT (USUALLY 5000 UNITS)
     Route: 051
  4. FRAXIPARINE [Suspect]

REACTIONS (1)
  - DEATH [None]
